FAERS Safety Report 7119637-4 (Version None)
Quarter: 2010Q4

REPORT INFORMATION
  Report Type: 
  Country: None (occurrence: None)
  Receive Date: 20101115
  Receipt Date: 20101105
  Transmission Date: 20110411
  Serious: Yes (Death)
  Sender: FDA-Public Use
  Company Number: 2010MA004294

PATIENT
  Age: 63 Year
  Sex: Female

DRUGS (3)
  1. FLUOXETINE [Suspect]
     Indication: DEPRESSION
     Dosage: 60 MG;QD;PO
     Route: 048
     Dates: start: 20090114, end: 20100225
  2. SINEMET [Suspect]
     Indication: PARKINSONISM
     Dosage: 0.5 DF;BID;PO
     Route: 048
     Dates: start: 20100115, end: 20100225
  3. CHLORPROMAZINE [Concomitant]

REACTIONS (9)
  - AGITATION [None]
  - BALANCE DISORDER [None]
  - DECREASED APPETITE [None]
  - DIZZINESS [None]
  - DRUG INTERACTION [None]
  - DRUG TOXICITY [None]
  - FEELING ABNORMAL [None]
  - SUDDEN DEATH [None]
  - WEIGHT DECREASED [None]
